FAERS Safety Report 9733576 (Version 1)
Quarter: 2013Q4

REPORT INFORMATION
  Report Type: Spontaneous
  Country: US (occurrence: US)
  Receive Date: 20131205
  Receipt Date: 20131205
  Transmission Date: 20140711
  Serious: Yes (Other)
  Sender: FDA-Public Use
  Company Number: US-GLAXOSMITHKLINE-A1051452A

PATIENT
  Age: 58 Year
  Sex: Female

DRUGS (4)
  1. LAMICTAL [Suspect]
     Indication: CONVULSION
     Dosage: 50MG PER DAY
     Route: 048
     Dates: start: 20131120
  2. TEGRETOL [Suspect]
     Indication: PRODUCT USED FOR UNKNOWN INDICATION
     Dosage: 300MG TWICE PER DAY
     Dates: start: 1994
  3. LISINOPRIL [Concomitant]
  4. ATORVASTATIN [Concomitant]

REACTIONS (1)
  - Convulsion [Unknown]
